FAERS Safety Report 15020107 (Version 1)
Quarter: 2018Q2

REPORT INFORMATION
  Report Type: Spontaneous
  Country: US (occurrence: US)
  Receive Date: 20180531
  Receipt Date: 20180531
  Transmission Date: 20180711
  Serious: No
  Sender: FDA-Public Use
  Company Number: None

PATIENT
  Age: 11 Year
  Sex: Male
  Weight: 63.5 kg

DRUGS (2)
  1. CHLORPROMAZINE. [Suspect]
     Active Substance: CHLORPROMAZINE
     Indication: AGITATION
  2. DIPHENHYDRAMINE 50MG [Concomitant]
     Active Substance: DIPHENHYDRAMINE

REACTIONS (1)
  - Rash [None]

NARRATIVE: CASE EVENT DATE: 20180318
